FAERS Safety Report 8501221-9 (Version None)
Quarter: 2012Q3

REPORT INFORMATION
  Report Type: 
  Country: None (occurrence: None)
  Receive Date: 20120710
  Receipt Date: 20120625
  Transmission Date: 20120928
  Serious: Yes (Other)
  Sender: FDA-Public Use
  Company Number: TR-WATSON-2012-11312

PATIENT
  Age: 14 Year
  Sex: Female

DRUGS (1)
  1. ACYCLOVIR [Suspect]
     Indication: VARICELLA
     Dosage: 1500 MG/M2, DAILY, IN 3 DIVIDED DOSES
     Route: 042

REACTIONS (3)
  - LEUKOCYTOCLASTIC VASCULITIS [None]
  - INJECTION SITE VESICLES [None]
  - EXTRAVASATION [None]
